FAERS Safety Report 24375303 (Version 1)
Quarter: 2024Q3

REPORT INFORMATION
  Report Type: Spontaneous
  Country: GB (occurrence: GB)
  Receive Date: 20240928
  Receipt Date: 20240928
  Transmission Date: 20241016
  Serious: Yes (Hospitalization, Other)
  Sender: CELLTRION
  Company Number: GB-ROCHE-10000080727

PATIENT

DRUGS (7)
  1. RITUXIMAB [Suspect]
     Active Substance: RITUXIMAB
     Indication: Product used for unknown indication
     Dosage: 6 CYCLES
     Dates: start: 20230724, end: 20231106
  2. RITUXIMAB [Suspect]
     Active Substance: RITUXIMAB
     Dosage: UNK
  3. POLATUZUMAB VEDOTIN [Suspect]
     Active Substance: POLATUZUMAB VEDOTIN
     Indication: Diffuse large B-cell lymphoma
     Dosage: 6 CYCLES
     Dates: start: 20230724, end: 20231106
  4. POLATUZUMAB VEDOTIN [Suspect]
     Active Substance: POLATUZUMAB VEDOTIN
     Dosage: UNK
     Dates: start: 20240724
  5. CYCLOPHOSPHAMIDE [Suspect]
     Active Substance: CYCLOPHOSPHAMIDE
     Indication: Product used for unknown indication
     Dosage: 6 CYCLES
     Dates: start: 20230724, end: 20231106
  6. DOXORUBICIN [Suspect]
     Active Substance: DOXORUBICIN
     Indication: Product used for unknown indication
     Dosage: 6 CYCLES
     Dates: start: 20230723, end: 20231106
  7. PREDNISONE [Suspect]
     Active Substance: PREDNISONE
     Indication: Product used for unknown indication
     Dosage: 6 CYCLES
     Dates: start: 20230724, end: 20231106

REACTIONS (7)
  - Neuralgia [Unknown]
  - Swelling [Unknown]
  - Dyspnoea [Unknown]
  - Cough [Unknown]
  - Dysphagia [Unknown]
  - Fatigue [Unknown]
  - Nausea [Unknown]
